FAERS Safety Report 8842002 (Version 1)
Quarter: 2012Q4

REPORT INFORMATION
  Report Type: Spontaneous
  Country: US (occurrence: None)
  Receive Date: 20121015
  Receipt Date: 20121015
  Transmission Date: 20130627
  Serious: Yes (Other)
  Sender: FDA-Public Use
  Company Number: None

PATIENT
  Sex: Female
  Weight: 77.11 kg

DRUGS (1)
  1. AMLODIPINE BESYLATE [Suspect]
     Indication: BLOOD PRESSURE HIGH
     Dosage: 20mg 1xa day
     Dates: start: 2011, end: 2012

REACTIONS (3)
  - Angina pectoris [None]
  - Asthenia [None]
  - Fatigue [None]
